FAERS Safety Report 25918544 (Version 1)
Quarter: 2025Q4

REPORT INFORMATION
  Report Type: Spontaneous
  Country: US (occurrence: None)
  Receive Date: 20251010
  Receipt Date: 20251010
  Transmission Date: 20260118
  Serious: Yes (Other)
  Sender: FDA-CTU
  Company Number: None

PATIENT
  Age: 44 Year
  Sex: Male

DRUGS (2)
  1. AUSTEDO XR [Suspect]
     Active Substance: DEUTETRABENAZINE
     Dosage: FREQUENCY : DAILY;?
     Route: 048
  2. QUETIAPINE [Suspect]
     Active Substance: QUETIAPINE

REACTIONS (2)
  - Drug interaction [None]
  - Product prescribing issue [None]
